FAERS Safety Report 11462967 (Version 1)
Quarter: 2015Q3

REPORT INFORMATION
  Report Type: Spontaneous
  Country: US (occurrence: US)
  Receive Date: 20150831
  Receipt Date: 20150831
  Transmission Date: 20151125
  Serious: No
  Sender: FDA-Public Use
  Company Number: US-ELI_LILLY_AND_COMPANY-US201102005287

PATIENT
  Age: 52 Year
  Sex: Female

DRUGS (14)
  1. ZYRTEC [Concomitant]
     Active Substance: CETIRIZINE HYDROCHLORIDE
     Dosage: UNK, UNKNOWN
  2. MUCINEX DM [Concomitant]
     Active Substance: DEXTROMETHORPHAN HYDROBROMIDE\GUAIFENESIN
     Dosage: UNK, EACH EVENING
  3. FLAXSEED [Concomitant]
     Active Substance: FLAX SEED
     Dosage: UNK, UNKNOWN
  4. IBUPROFEN. [Concomitant]
     Active Substance: IBUPROFEN
     Dosage: UNK, UNKNOWN
  5. TRAMADOL. [Concomitant]
     Active Substance: TRAMADOL
     Dosage: 50 MG, UNKNOWN
  6. HYDROCODONE BITARTRATE AND ACETAMINOPHEN [Concomitant]
     Active Substance: ACETAMINOPHEN\HYDROCODONE BITARTRATE
     Dosage: UNK, UNKNOWN
  7. PREMARIN [Concomitant]
     Active Substance: ESTROGENS, CONJUGATED
     Dosage: 0.9 MG, DAILY (1/D)
  8. CLARITIN [Concomitant]
     Active Substance: LORATADINE
     Dosage: UNK, UNKNOWN
  9. MUCINEX [Concomitant]
     Active Substance: GUAIFENESIN
     Dosage: UNK, EACH MORNING
  10. VITAMIN B COMPLEX [Concomitant]
     Active Substance: CYANOCOBALAMIN\DEXPANTHENOL\NIACINAMIDE\PYRIDOXINE HYDROCHLORIDE\RIBOFLAVIN 5^-PHOSPHATE SODIUM\THIAMINE HYDROCHLORIDE\VITAMIN B COMPLEX
     Dosage: UNK, UNKNOWN
  11. POTASSIUM [Concomitant]
     Active Substance: POTASSIUM
     Dosage: UNK, UNKNOWN
  12. CYMBALTA [Suspect]
     Active Substance: DULOXETINE HYDROCHLORIDE
     Indication: FIBROMYALGIA
  13. ATENOLOL. [Concomitant]
     Active Substance: ATENOLOL
     Dosage: 100 MG, DAILY (1/D)
  14. CALCIUM [Concomitant]
     Active Substance: CALCIUM
     Dosage: UNK, UNKNOWN

REACTIONS (7)
  - Burning sensation [Not Recovered/Not Resolved]
  - Arthralgia [Not Recovered/Not Resolved]
  - Muscle spasms [Not Recovered/Not Resolved]
  - Drug effect incomplete [Not Recovered/Not Resolved]
  - Spinal pain [Not Recovered/Not Resolved]
  - Pain [Not Recovered/Not Resolved]
  - Pain in extremity [Not Recovered/Not Resolved]
